FAERS Safety Report 7812596-8 (Version None)
Quarter: 2011Q4

REPORT INFORMATION
  Report Type: 
  Country: None (occurrence: None)
  Receive Date: 20111013
  Receipt Date: 20110928
  Transmission Date: 20120403
  Serious: Yes (Hospitalization)
  Sender: FDA-Public Use
  Company Number: US-ARROW GEN-2011-16103

PATIENT
  Age: 57 Year
  Sex: Female

DRUGS (1)
  1. TACROLIMUS [Suspect]
     Indication: RENAL TRANSPLANT
     Dosage: 1 MG QAM, 1.5 MG QPM

REACTIONS (6)
  - HYPOAESTHESIA [None]
  - CLUSTER HEADACHE [None]
  - NEUROTOXICITY [None]
  - CATATONIA [None]
  - CONFUSIONAL STATE [None]
  - SYSTOLIC HYPERTENSION [None]
